FAERS Safety Report 23910555 (Version 1)
Quarter: 2024Q2

REPORT INFORMATION
  Report Type: Spontaneous
  Country: US (occurrence: US)
  Receive Date: 20240528
  Receipt Date: 20240528
  Transmission Date: 20240716
  Serious: No
  Sender: FDA-Public Use
  Company Number: US-PFIZER INC-202400175873

PATIENT
  Age: 62 Year
  Sex: Female
  Weight: 64.86 kg

DRUGS (4)
  1. NURTEC ODT [Suspect]
     Active Substance: RIMEGEPANT SULFATE
     Indication: Headache
     Dosage: 75MG, SAYS TO BE TAKING EVERY OTHER NIGHT, MELTS UNDER TONGUE
     Route: 060
     Dates: start: 20240522
  2. AMLODIPINE [Suspect]
     Active Substance: AMLODIPINE BESYLATE
     Indication: Blood pressure abnormal
     Dosage: 5MG DAILY
     Route: 048
     Dates: start: 20240521
  3. LISINOPRIL [Suspect]
     Active Substance: LISINOPRIL
     Indication: Blood pressure abnormal
     Dosage: 10MG TABLET
     Route: 048
     Dates: start: 20240522
  4. REPATHA [Suspect]
     Active Substance: EVOLOCUMAB
     Indication: Blood cholesterol abnormal
     Dosage: GETS BIMONTHLY REPATHA SHOT

REACTIONS (4)
  - Abdominal pain upper [Unknown]
  - Feeling abnormal [Unknown]
  - Drug ineffective for unapproved indication [Unknown]
  - Off label use [Unknown]

NARRATIVE: CASE EVENT DATE: 20240522
